FAERS Safety Report 12885280 (Version 1)
Quarter: 2016Q4

REPORT INFORMATION
  Report Type: Spontaneous
  Country: US (occurrence: US)
  Receive Date: 20161025
  Receipt Date: 20161025
  Transmission Date: 20170207
  Serious: Yes (Hospitalization)
  Sender: FDA-Public Use
  Company Number: None

PATIENT
  Age: 53 Year
  Sex: Male

DRUGS (1)
  1. CAPECITABINE TAB 500MG [Suspect]
     Active Substance: CAPECITABINE
     Indication: CHRONIC HEPATITIS C
     Route: 048

REACTIONS (6)
  - Vomiting [None]
  - Nausea [None]
  - Pain [None]
  - Body temperature fluctuation [None]
  - Neuropathy peripheral [None]
  - Therapy change [None]

NARRATIVE: CASE EVENT DATE: 20161011
